FAERS Safety Report 18049458 (Version 1)
Quarter: 2020Q3

REPORT INFORMATION
  Report Type: Spontaneous
  Country: US (occurrence: US)
  Receive Date: 20200721
  Receipt Date: 20200721
  Transmission Date: 20201103
  Serious: No
  Sender: FDA-Public Use
  Company Number: US-SA-2020SA184364

PATIENT

DRUGS (3)
  1. DUPIXENT [Suspect]
     Active Substance: DUPILUMAB
     Indication: DERMATITIS ATOPIC
     Dosage: 300 MG, QOW
     Dates: start: 20200701
  2. ATORVASTATINE [ATORVASTATIN] [Concomitant]
     Active Substance: ATORVASTATIN
     Indication: BLOOD CHOLESTEROL
  3. ESTRADIOL. [Concomitant]
     Active Substance: ESTRADIOL

REACTIONS (6)
  - Emotional disorder [Unknown]
  - Eye irritation [Unknown]
  - Condition aggravated [Unknown]
  - Eye pruritus [Unknown]
  - Ocular hyperaemia [Unknown]
  - Crying [Unknown]

NARRATIVE: CASE EVENT DATE: 202007
